FAERS Safety Report 6317640-5 (Version None)
Quarter: 2009Q3

REPORT INFORMATION
  Report Type: 
  Country: None (occurrence: None)
  Receive Date: 20090820
  Receipt Date: 20090820
  Transmission Date: 20100115
  Serious: Yes (Hospitalization)
  Sender: FDA-Public Use
  Company Number: None

PATIENT
  Sex: Female
  Weight: 51.7 kg

DRUGS (1)
  1. LIPITOR 10 MG ONCE DAILY BY MOUTH [Suspect]
     Indication: HYPERCHOLESTEROLAEMIA
     Dosage: 10 MG ONCE DAILY BY MOUTH
     Route: 048
     Dates: start: 20081001, end: 20090601

REACTIONS (2)
  - ABASIA [None]
  - RHABDOMYOLYSIS [None]
